FAERS Safety Report 22212823 (Version 1)
Quarter: 2023Q2

REPORT INFORMATION
  Report Type: Spontaneous
  Country: US (occurrence: US)
  Receive Date: 20230414
  Receipt Date: 20230414
  Transmission Date: 20230722
  Serious: Yes (Other)
  Sender: FDA-Public Use
  Company Number: US-AMGEN-USASP2023061350

PATIENT
  Age: 18 Year
  Sex: Male

DRUGS (3)
  1. BLINCYTO [Suspect]
     Active Substance: BLINATUMOMAB
     Indication: Acute lymphocytic leukaemia
     Dosage: 9 MICROGRAM, QD
     Route: 042
     Dates: start: 20230404, end: 20230404
  2. BLINCYTO [Suspect]
     Active Substance: BLINATUMOMAB
     Dosage: UNK, INSTEAD OF RUNNING AT 10ML/HOUR, TURNED PUMP DOWN TO 5 ML /HOUR
     Route: 042
     Dates: start: 202304, end: 20230406
  3. BLINCYTO [Suspect]
     Active Substance: BLINATUMOMAB
     Dosage: UNK, STARTED AT 5 ML/HOUR AND TITRATED UP TO 7.5 ML/HOUR
     Route: 042
     Dates: start: 202304

REACTIONS (2)
  - Cytokine release syndrome [Unknown]
  - Hepatic enzyme increased [Unknown]

NARRATIVE: CASE EVENT DATE: 20230401
